FAERS Safety Report 5999481-1 (Version None)
Quarter: 2008Q4

REPORT INFORMATION
  Report Type: 
  Country: None (occurrence: None)
  Receive Date: 20081203
  Receipt Date: 20081203
  Transmission Date: 20090506
  Serious: Yes (Hospitalization)
  Sender: FDA-Public Use
  Company Number: None

PATIENT
  Sex: Female
  Weight: 39.4629 kg

DRUGS (1)
  1. DUONEB [Suspect]
     Indication: EMPHYSEMA
     Dosage: 2/3 TIMES DAILY
     Dates: start: 20050301

REACTIONS (6)
  - ABNORMAL SENSATION IN EYE [None]
  - ALOPECIA [None]
  - BALANCE DISORDER [None]
  - DIZZINESS [None]
  - HEADACHE [None]
  - URGE INCONTINENCE [None]
